FAERS Safety Report 4304871-9 (Version None)
Quarter: 2004Q1

REPORT INFORMATION
  Report Type: 
  Country: None (occurrence: None)
  Receive Date: 20040226
  Receipt Date: 20040102
  Transmission Date: 20041129
  Serious: No
  Sender: FDA-Public Use
  Company Number: US-GLAXOSMITHKLINE-A0491277A

PATIENT
  Age: 56 Year
  Sex: Female
  Weight: 63.2 kg

DRUGS (7)
  1. WELLBUTRIN XL [Suspect]
     Dosage: 150MG IN THE MORNING
  2. NORVASC [Concomitant]
     Dosage: 5MG PER DAY
  3. IMITREX [Concomitant]
     Dosage: 50MG AS REQUIRED
  4. MULTI-VITAMIN [Concomitant]
  5. ALEVE [Concomitant]
  6. DYAZIDE [Concomitant]
  7. ESTRATEST [Concomitant]

REACTIONS (1)
  - MUSCLE TWITCHING [None]
